FAERS Safety Report 5247367-2 (Version None)
Quarter: 2007Q1

REPORT INFORMATION
  Report Type: 
  Country: None (occurrence: None)
  Receive Date: 20070227
  Receipt Date: 20070215
  Transmission Date: 20070707
  Serious: Yes (Life-Threatening, Hospitalization)
  Sender: FDA-Public Use
  Company Number: BR-JNJFOC-20060802943

PATIENT
  Sex: Male
  Weight: 61.9 kg

DRUGS (30)
  1. PREZISTA [Suspect]
     Route: 048
  2. PREZISTA [Suspect]
     Route: 048
  3. PREZISTA [Suspect]
     Route: 048
  4. PREZISTA [Suspect]
     Route: 048
  5. PREZISTA [Suspect]
     Indication: HIV INFECTION
     Route: 048
  6. RITONAVIR [Suspect]
     Route: 048
  7. RITONAVIR [Suspect]
     Route: 048
  8. RITONAVIR [Suspect]
     Route: 048
  9. RITONAVIR [Suspect]
     Route: 048
  10. RITONAVIR [Suspect]
     Route: 048
  11. RITONAVIR [Suspect]
     Indication: HIV INFECTION
     Route: 048
  12. TENOFOVIR DISOPROXIL FUMARATE [Suspect]
     Indication: HIV INFECTION
     Route: 048
  13. LAMIVUDINE [Concomitant]
     Route: 048
  14. LAMIVUDINE [Concomitant]
     Route: 048
  15. LAMIVUDINE [Concomitant]
     Indication: HIV INFECTION
     Route: 048
  16. ENFUVIRTIDE [Concomitant]
     Route: 058
  17. ENFUVIRTIDE [Concomitant]
     Route: 058
  18. ENFUVIRTIDE [Concomitant]
     Indication: HIV INFECTION
     Route: 058
  19. DIDANOSINE [Concomitant]
     Indication: HIV INFECTION
     Route: 048
  20. BACTRIM [Concomitant]
     Indication: ANTIFUNGAL PROPHYLAXIS
     Dosage: STARTED PRE-TRIAL
     Route: 048
  21. FLUCONAZOLE [Concomitant]
     Indication: INFECTION PROPHYLAXIS
     Dosage: STARTED PRE-TRIAL
     Route: 048
  22. METOCLOPRAMIDE [Concomitant]
     Indication: VOMITING
     Route: 048
  23. OMEPRAZOLE [Concomitant]
     Indication: GASTRITIS EROSIVE
     Route: 048
  24. OMEPRAZOLE [Concomitant]
     Indication: GASTRIC ULCER
     Route: 048
  25. OMEPRAZOLE [Concomitant]
     Indication: ABDOMINAL PAIN UPPER
     Route: 048
  26. METAMUCIL [Concomitant]
     Indication: GASTRITIS EROSIVE
     Route: 048
  27. METAMUCIL [Concomitant]
     Indication: GASTRIC ULCER
     Route: 048
  28. PARACETAMOL [Concomitant]
     Indication: CHEST PAIN
     Route: 048
  29. DICLOFENAC SODIUM [Concomitant]
     Indication: CHEST PAIN
     Route: 048
  30. DIMORF [Concomitant]
     Indication: CHEST PAIN
     Route: 048

REACTIONS (23)
  - ABDOMINAL PAIN [None]
  - BLOOD LACTIC ACID INCREASED [None]
  - BLOOD SODIUM DECREASED [None]
  - CEREBRAL VENOUS THROMBOSIS [None]
  - CHEST PAIN [None]
  - CONFUSIONAL STATE [None]
  - CONSTIPATION [None]
  - DEHYDRATION [None]
  - FANCONI SYNDROME [None]
  - GALLBLADDER DISORDER [None]
  - GASTRIC ULCER [None]
  - GASTRITIS EROSIVE [None]
  - GLUCOSE URINE PRESENT [None]
  - HYPOALBUMINAEMIA [None]
  - HYPONATRAEMIA [None]
  - INJECTION SITE REACTION [None]
  - METABOLIC ACIDOSIS [None]
  - NASOPHARYNGITIS [None]
  - PNEUMONIA BACTERIAL [None]
  - PORTAL HYPERTENSION [None]
  - RENAL FAILURE ACUTE [None]
  - SPLENOMEGALY [None]
  - VARICES OESOPHAGEAL [None]
